FAERS Safety Report 18579207 (Version 1)
Quarter: 2020Q4

REPORT INFORMATION
  Report Type: Report from Study
  Country: US (occurrence: US)
  Receive Date: 20201204
  Receipt Date: 20201204
  Transmission Date: 20210114
  Serious: Yes (Other)
  Sender: FDA-Public Use
  Company Number: NVSC2020US319168

PATIENT
  Age: 68 Year
  Sex: Female

DRUGS (1)
  1. ENTRESTO [Suspect]
     Active Substance: SACUBITRIL\VALSARTAN
     Indication: CARDIAC FAILURE CONGESTIVE
     Dosage: 100 MG, BID (49/51MG)
     Route: 048
     Dates: start: 2016

REACTIONS (5)
  - Atrial fibrillation [Not Recovered/Not Resolved]
  - Thyroid disorder [Not Recovered/Not Resolved]
  - Arrhythmia [Unknown]
  - Blood glucose increased [Unknown]
  - Cardiac dysfunction [Not Recovered/Not Resolved]

NARRATIVE: CASE EVENT DATE: 2017
